FAERS Safety Report 4505112-X (Version None)
Quarter: 2004Q4

REPORT INFORMATION
  Report Type: 
  Country: None (occurrence: None)
  Receive Date: 20041119
  Receipt Date: 20041109
  Transmission Date: 20050328
  Serious: Yes (Other)
  Sender: FDA-Public Use
  Company Number: US-ABBOTT-04P-163-0280003-00

PATIENT
  Sex: Female
  Weight: 56.296 kg

DRUGS (12)
  1. HUMIRA [Suspect]
     Indication: RHEUMATOID ARTHRITIS
     Route: 058
     Dates: start: 20030101, end: 20041101
  2. LANSOPRAZOLE [Concomitant]
     Indication: GASTROOESOPHAGEAL REFLUX DISEASE
  3. LEVOTHYROXINE SODIUM [Concomitant]
     Indication: HYPOTHYROIDISM
  4. NABUMETONE [Concomitant]
     Indication: SJOGREN'S SYNDROME
  5. HYDROXYCHLOROQUINE PHOSPHATE [Concomitant]
     Indication: SJOGREN'S SYNDROME
  6. FLUCONAZOLE [Concomitant]
     Indication: CANDIDIASIS
  7. DILTIAZEM HYDROCHLORIDE [Concomitant]
     Indication: MIGRAINE
  8. ATORVASTATIN CALCIUM [Concomitant]
     Indication: BLOOD CHOLESTEROL INCREASED
  9. SALBUTAMOL [Concomitant]
     Indication: ASTHMA
  10. PENTOBARBITAL SODIUM [Concomitant]
     Indication: SLEEP DISORDER
  11. EPOGEN [Concomitant]
     Indication: ANAEMIA
     Route: 050
     Dates: start: 20041105
  12. ^INTRAVENOUS INFUSIONS^ [Concomitant]
     Indication: IRON DEFICIENCY
     Dates: start: 20041001, end: 20041104

REACTIONS (3)
  - CONDITION AGGRAVATED [None]
  - INFECTION [None]
  - IRON DEFICIENCY ANAEMIA [None]
